FAERS Safety Report 22989169 (Version 2)
Quarter: 2023Q4

REPORT INFORMATION
  Report Type: Spontaneous
  Country: NZ (occurrence: NZ)
  Receive Date: 20230927
  Receipt Date: 20231004
  Transmission Date: 20240109
  Serious: No
  Sender: FDA-Public Use
  Company Number: NZ-AMGEN-NZLSP2023134128

PATIENT
  Age: 51 Year
  Sex: Female
  Weight: 42 kg

DRUGS (5)
  1. ADALIMUMAB [Suspect]
     Active Substance: ADALIMUMAB
     Indication: Juvenile idiopathic arthritis
     Dosage: 40 MILLIGRAM, Q2WK
     Route: 058
     Dates: start: 20230609
  2. ADALIMUMAB [Suspect]
     Active Substance: ADALIMUMAB
     Dosage: 20 MILLIGRAM, Q2WK
     Route: 058
  3. ADALIMUMAB [Suspect]
     Active Substance: ADALIMUMAB
     Dosage: 20 MILLIGRAM, Q2WK
     Route: 058
  4. ESTRADIOL [Concomitant]
     Active Substance: ESTRADIOL
     Dosage: HRT (ESTRADOT PATCHES)
  5. DEPO-MEDROL [Concomitant]
     Active Substance: METHYLPREDNISOLONE ACETATE
     Indication: Knee deformity

REACTIONS (23)
  - Menstrual disorder [Not Recovered/Not Resolved]
  - Sneezing [Recovering/Resolving]
  - Toothache [Unknown]
  - Skin mass [Unknown]
  - Heart rate increased [Unknown]
  - Rhinorrhoea [Recovering/Resolving]
  - Nail disorder [Unknown]
  - Musculoskeletal disorder [Unknown]
  - Abdominal pain lower [Unknown]
  - Breast pain [Unknown]
  - Vaginal discharge [Not Recovered/Not Resolved]
  - Stress [Unknown]
  - Ill-defined disorder [Unknown]
  - Rhinalgia [Unknown]
  - Sleep disorder [Unknown]
  - Oropharyngeal pain [Recovering/Resolving]
  - Fatigue [Unknown]
  - Anxiety [Unknown]
  - Dyspepsia [Unknown]
  - Rash [Unknown]
  - Tremor [Unknown]
  - Chest pain [Not Recovered/Not Resolved]
  - Headache [Unknown]

NARRATIVE: CASE EVENT DATE: 20230101
